FAERS Safety Report 9370712 (Version 1)
Quarter: 2013Q2

REPORT INFORMATION
  Report Type: Spontaneous
  Country: FR (occurrence: FR)
  Receive Date: 20130626
  Receipt Date: 20130626
  Transmission Date: 20140414
  Serious: Yes (Life-Threatening, Hospitalization)
  Sender: FDA-Public Use
  Company Number: FR-TEVA-414027ISR

PATIENT
  Sex: Female

DRUGS (1)
  1. FUROSEMIDE TEVA 40 MG [Suspect]
     Dosage: 80 MILLIGRAM DAILY;
     Dates: start: 20130609

REACTIONS (1)
  - Acute pulmonary oedema [Recovering/Resolving]
